FAERS Safety Report 16629925 (Version 2)
Quarter: 2019Q3

REPORT INFORMATION
  Report Type: Spontaneous
  Country: ZA (occurrence: ZA)
  Receive Date: 20190725
  Receipt Date: 20190802
  Transmission Date: 20191004
  Serious: Yes (Hospitalization)
  Sender: FDA-Public Use
  Company Number: ZA-B.I. PHARMACEUTICALS,INC./RIDGEFIELD-2019-BI-030472

PATIENT
  Age: 84 Year
  Sex: Male
  Weight: 45 kg

DRUGS (1)
  1. PRADAXA [Suspect]
     Active Substance: DABIGATRAN ETEXILATE MESYLATE
     Indication: PRODUCT USED FOR UNKNOWN INDICATION
     Route: 048
     Dates: start: 201901, end: 201907

REACTIONS (3)
  - Hypocoagulable state [Unknown]
  - Hypovolaemic shock [Not Recovered/Not Resolved]
  - Diarrhoea [Not Recovered/Not Resolved]
